FAERS Safety Report 4968421-6 (Version None)
Quarter: 2006Q2

REPORT INFORMATION
  Report Type: 
  Country: None (occurrence: None)
  Receive Date: 20060410
  Receipt Date: 20051102
  Transmission Date: 20061013
  Serious: Yes (Hospitalization, Other)
  Sender: FDA-Public Use
  Company Number: US-MERCK-0511USA00622

PATIENT
  Age: 51 Year
  Sex: Female
  Weight: 142 kg

DRUGS (13)
  1. VIOXX [Suspect]
     Indication: MONARTHRITIS
     Route: 048
     Dates: start: 20020820, end: 20040928
  2. DIOVAN [Concomitant]
     Indication: HYPERTENSION
     Route: 065
     Dates: start: 19980701
  3. ZIAC [Concomitant]
     Indication: HYPERTENSION
     Route: 065
  4. ZIAC [Concomitant]
     Indication: POLYURIA
     Route: 065
  5. TRAMADOLOR [Concomitant]
     Indication: PAIN
     Route: 065
  6. ACETAMINOPHEN AND HYDROCODONE BITARTRATE [Concomitant]
     Indication: PAIN
     Route: 065
     Dates: start: 20021231, end: 20030120
  7. ACETAMINOPHEN AND PROPOXYPHENE NAPSYLATE [Concomitant]
     Indication: PAIN
     Route: 065
     Dates: start: 20021231, end: 20040722
  8. BENZONATATE [Concomitant]
     Indication: NASOPHARYNGITIS
     Route: 065
  9. BENZONATATE [Concomitant]
     Indication: COUGH
     Route: 065
  10. DOXYCYCLINE [Concomitant]
     Indication: ANTIBIOTIC LEVEL
     Route: 065
  11. PROMETHAZINE [Concomitant]
     Indication: NAUSEA
     Route: 065
  12. SONATA [Concomitant]
     Indication: SLEEP DISORDER THERAPY
     Route: 065
  13. TRAMADOL HYDROCHLORIDE [Concomitant]
     Indication: PAIN
     Route: 065
     Dates: start: 20020925, end: 20041009

REACTIONS (3)
  - MYOCARDIAL INFARCTION [None]
  - PULMONARY EMBOLISM [None]
  - VARICOSE VEIN [None]
